FAERS Safety Report 18943829 (Version 1)
Quarter: 2021Q1

REPORT INFORMATION
  Report Type: Spontaneous
  Country: JP (occurrence: JP)
  Receive Date: 20210226
  Receipt Date: 20210226
  Transmission Date: 20210420
  Serious: Yes (Other)
  Sender: FDA-Public Use
  Company Number: JP-ROCHE-2776924

PATIENT
  Age: 6 Decade
  Sex: Female

DRUGS (3)
  1. CICLOSPORIN [Concomitant]
     Active Substance: CYCLOSPORINE
     Dosage: DOSAGE IS UNCERTAIN.
     Route: 065
  2. IMURAN [Concomitant]
     Active Substance: AZATHIOPRINE
     Route: 065
  3. ENSPRYNG [Suspect]
     Active Substance: SATRALIZUMAB-MWGE
     Indication: NEUROMYELITIS OPTICA SPECTRUM DISORDER
     Route: 058
     Dates: start: 20210107

REACTIONS (1)
  - Lymphocyte count decreased [Recovering/Resolving]

NARRATIVE: CASE EVENT DATE: 20210122
